FAERS Safety Report 5222283-0 (Version None)
Quarter: 2007Q1

REPORT INFORMATION
  Report Type: 
  Country: None (occurrence: None)
  Receive Date: 20070124
  Receipt Date: 20070116
  Transmission Date: 20070707
  Serious: Yes (Other)
  Sender: FDA-Public Use
  Company Number: 2007S1000020

PATIENT
  Age: 76 Year
  Sex: Female

DRUGS (6)
  1. SORIATANE [Suspect]
     Indication: PSORIASIS
     Dosage: 10 MG; QD; PO
     Route: 048
     Dates: start: 19980101, end: 20070116
  2. LIPITOR /01326101/ [Concomitant]
  3. CAPTOPRIL [Concomitant]
  4. METFORMIN HCL [Concomitant]
  5. MIACALCIN [Concomitant]
  6. ASPIRIN [Concomitant]

REACTIONS (4)
  - ARTHROPATHY [None]
  - EXOSTOSIS [None]
  - LIGAMENT CALCIFICATION [None]
  - SPINAL DISORDER [None]
